FAERS Safety Report 7297691-7 (Version None)
Quarter: 2011Q1

REPORT INFORMATION
  Report Type: 
  Country: None (occurrence: None)
  Receive Date: 20110216
  Receipt Date: 20110208
  Transmission Date: 20110831
  Serious: Yes (Hospitalization)
  Sender: FDA-Public Use
  Company Number: PL-BRISTOL-MYERS SQUIBB COMPANY-15541014

PATIENT
  Age: 76 Year
  Sex: Female

DRUGS (11)
  1. METFORMAX [Concomitant]
  2. DICLAC [Concomitant]
  3. ACARD [Concomitant]
  4. GLUCOPHAGE [Suspect]
     Indication: TYPE 2 DIABETES MELLITUS
     Dosage: GLUCOPHAGE XR.
     Route: 048
     Dates: start: 20110120, end: 20110120
  5. RAMIPRIL [Concomitant]
  6. METYPRED [Concomitant]
     Dosage: 1 DF: 4-12MG
  7. MADOPAR [Concomitant]
  8. SORTIS [Concomitant]
  9. VIGANTOLETTEN [Concomitant]
  10. PANTOPRAZOLE [Concomitant]
  11. ACENOCOUMAROL [Concomitant]
     Indication: INTERNATIONAL NORMALISED RATIO
     Dosage: IN DOSES ACCORDING OT INR

REACTIONS (2)
  - PRURITUS [None]
  - SKIN LESION [None]
